FAERS Safety Report 16089114 (Version 2)
Quarter: 2019Q2

REPORT INFORMATION
  Report Type: Spontaneous
  Country: AR (occurrence: AR)
  Receive Date: 20190319
  Receipt Date: 20190507
  Transmission Date: 20190711
  Serious: Yes (Other)
  Sender: FDA-Public Use
  Company Number: AR-009507513-1903ARG006741

PATIENT
  Age: 61 Year
  Sex: Male

DRUGS (4)
  1. SOFOSBUVIR [Suspect]
     Active Substance: SOFOSBUVIR
     Indication: CHRONIC HEPATITIS C
     Dosage: 400 MILLIGRAM, 1 TIME PER DAY
     Dates: start: 20170724, end: 20171002
  2. ZEPATIER [Suspect]
     Active Substance: ELBASVIR\GRAZOPREVIR
     Dosage: 50/100 MG, 1 TIME PER DAY (1 BOX) (LAST ONE)
     Route: 048
     Dates: start: 20170724, end: 20171002
  3. DACLATASVIR (+) SOFOSBUVIR [Suspect]
     Active Substance: DACLATASVIR\SOFOSBUVIR
     Indication: CHRONIC HEPATITIS C
     Dosage: UNK
     Dates: start: 2015
  4. ZEPATIER [Suspect]
     Active Substance: ELBASVIR\GRAZOPREVIR
     Indication: CHRONIC HEPATITIS C
     Dosage: 50/100 MG, 1 TIME PER DAY (2 BOXES)
     Route: 048
     Dates: start: 20170724, end: 20171002

REACTIONS (1)
  - Hepatitis C [Unknown]

NARRATIVE: CASE EVENT DATE: 201810
